FAERS Safety Report 9548699 (Version 1)
Quarter: 2013Q2

REPORT INFORMATION
  Report Type: Spontaneous
  Country: US (occurrence: None)
  Receive Date: 20130627
  Receipt Date: 20130627
  Transmission Date: 20140414
  Serious: Yes (Other)
  Sender: FDA-Public Use
  Company Number: 1000044017

PATIENT
  Age: 72 Year
  Sex: Female

DRUGS (3)
  1. LINZESS [Suspect]
     Indication: CONSTIPATION
     Dosage: 145 MCG (145 MCG, 1 IN 1 D, ORAL
     Route: 048
     Dates: start: 20130309
  2. METFORMIN (METFORMIN) (METFORMIN) [Concomitant]
  3. AMBIEN (ZOLPIDEM TARTRATE) (ZOLPIDEM TARTRATE) [Concomitant]

REACTIONS (1)
  - Upper respiratory tract infection [None]
